FAERS Safety Report 24640368 (Version 2)
Quarter: 2024Q4

REPORT INFORMATION
  Report Type: Spontaneous
  Country: SG (occurrence: SG)
  Receive Date: 20241120
  Receipt Date: 20241121
  Transmission Date: 20250114
  Serious: Yes (Other)
  Sender: RANBAXY
  Company Number: SG-SUN PHARMACEUTICAL INDUSTRIES LTD-2024R1-479743

PATIENT
  Sex: Male

DRUGS (2)
  1. HYDROCHLOROTHIAZIDE [Suspect]
     Active Substance: HYDROCHLOROTHIAZIDE
     Indication: Hypoglycaemia
     Dosage: UNK
     Route: 065
  2. DIAZOXIDE [Concomitant]
     Active Substance: DIAZOXIDE
     Indication: Hypoglycaemia
     Dosage: 5 MILLIGRAM/KILOGRAM, DAILY
     Route: 065

REACTIONS (1)
  - Disease recurrence [Unknown]
